FAERS Safety Report 7775089-2 (Version None)
Quarter: 2011Q3

REPORT INFORMATION
  Report Type: 
  Country: None (occurrence: None)
  Receive Date: 20110921
  Receipt Date: 20110908
  Transmission Date: 20111222
  Serious: Yes (Hospitalization)
  Sender: FDA-Public Use
  Company Number: 2011SP042506

PATIENT
  Age: 66 Year
  Sex: Female
  Weight: 94 kg

DRUGS (6)
  1. RIBAVIRIN [Suspect]
     Indication: HEPATITIS C
  2. LEVOTHYROXINE SODIUM [Concomitant]
  3. PROPRANOLOL [Concomitant]
  4. BOCEPREVIR (SCH-503034) [Suspect]
     Indication: HEPATITIS C
     Dosage: 800 MG; TID; PO
     Route: 048
     Dates: start: 20110421, end: 20110808
  5. INTERFERON [Suspect]
     Indication: HEPATITIS C
  6. COLCHICINE [Concomitant]

REACTIONS (6)
  - MEDIASTINAL SHIFT [None]
  - CARDIOMEGALY [None]
  - PLEURAL EFFUSION [None]
  - PLEURAL INFECTION [None]
  - UTERINE LEIOMYOMA [None]
  - GENERAL PHYSICAL HEALTH DETERIORATION [None]
